FAERS Safety Report 14706787 (Version 1)
Quarter: 2018Q2

REPORT INFORMATION
  Report Type: Not Available
  Country: US (occurrence: US)
  Receive Date: 20180403
  Receipt Date: 20180403
  Transmission Date: 20180711
  Serious: Yes (Death)
  Sender: FDA-Public Use
  Company Number: US-ANIPHARMA-2018-US-004318

PATIENT
  Age: 64 Year
  Sex: Male

DRUGS (1)
  1. VANCOMYCIN HYDROCHLORIDE (NON-SPECIFIC) [Suspect]
     Active Substance: VANCOMYCIN HYDROCHLORIDE

REACTIONS (4)
  - Death [Unknown]
  - Drug reaction with eosinophilia and systemic symptoms [Unknown]
  - Enterocolitis [Fatal]
  - Multiple organ dysfunction syndrome [Fatal]
